FAERS Safety Report 13517268 (Version 1)
Quarter: 2017Q2

REPORT INFORMATION
  Report Type: Spontaneous
  Country: US (occurrence: US)
  Receive Date: 20170504
  Receipt Date: 20170504
  Transmission Date: 20170830
  Serious: No
  Sender: FDA-Public Use
  Company Number: None

PATIENT
  Age: 69 Year
  Sex: Male

DRUGS (2)
  1. SOVALDI [Concomitant]
     Active Substance: SOFOSBUVIR
  2. DAKLINZA [Suspect]
     Active Substance: DACLATASVIR
     Indication: HEPATITIS C
     Route: 048
     Dates: start: 20170316

REACTIONS (2)
  - Flatulence [None]
  - Insomnia [None]

NARRATIVE: CASE EVENT DATE: 20170504
